FAERS Safety Report 9656061 (Version 1)
Quarter: 2013Q4

REPORT INFORMATION
  Report Type: Spontaneous
  Country: CA (occurrence: CA)
  Receive Date: 20131030
  Receipt Date: 20131030
  Transmission Date: 20140711
  Serious: Yes (Death)
  Sender: FDA-Public Use
  Company Number: CA-ROCHE-1293437

PATIENT
  Age: 61 Year
  Sex: Female
  Weight: 66 kg

DRUGS (9)
  1. XENICAL [Suspect]
     Indication: PRODUCT USED FOR UNKNOWN INDICATION
     Route: 048
  2. THERMA LEAN [Suspect]
     Indication: PRODUCT USED FOR UNKNOWN INDICATION
     Dosage: DOSE: 1 DOSAGE FORMS; THERAPY DURATOION: 18.0 DAYS
     Route: 048
  3. ASPIRIN [Concomitant]
     Route: 065
  4. CELEBREX [Concomitant]
     Route: 065
  5. GLUCOPHAGE [Concomitant]
     Route: 065
  6. HYDROCHLOROTHIAZIDE [Concomitant]
     Route: 065
  7. LOPRESOR SR [Concomitant]
     Route: 065
  8. MAVIK [Concomitant]
     Route: 065
  9. SERAX (CANADA) [Concomitant]
     Route: 065

REACTIONS (9)
  - Aneurysm ruptured [Fatal]
  - Cerebral thrombosis [Fatal]
  - Condition aggravated [Fatal]
  - Contusion [Fatal]
  - Ecchymosis [Fatal]
  - Haemorrhage intracranial [Fatal]
  - Headache [Fatal]
  - Pulmonary congestion [Fatal]
  - Pulmonary oedema [Fatal]
